FAERS Safety Report 17545698 (Version 1)
Quarter: 2020Q1

REPORT INFORMATION
  Report Type: Spontaneous
  Country: NL (occurrence: NL)
  Receive Date: 20200316
  Receipt Date: 20200316
  Transmission Date: 20200409
  Serious: Yes (Death)
  Sender: FDA-Public Use
  Company Number: NL-MYLANLABS-2020M1026929

PATIENT
  Age: 51 Year
  Sex: Male

DRUGS (6)
  1. REAGILA [Suspect]
     Active Substance: CARIPRAZINE
     Dosage: UNK
  2. CISORDINOL DEPOT [Concomitant]
     Active Substance: ZUCLOPENTHIXOL
     Indication: PRODUCT USED FOR UNKNOWN INDICATION
     Dosage: 50 MILLIGRAM, Q2W
  3. REAGILA [Suspect]
     Active Substance: CARIPRAZINE
     Indication: PSYCHOTIC DISORDER
     Dosage: UNK
  4. COCAINE [Suspect]
     Active Substance: COCAINE
     Indication: PRODUCT USED FOR UNKNOWN INDICATION
     Dosage: UNK
  5. MORPHINE [Suspect]
     Active Substance: MORPHINE
     Indication: PRODUCT USED FOR UNKNOWN INDICATION
     Dosage: UNK
  6. REAGILA [Suspect]
     Active Substance: CARIPRAZINE
     Indication: PROPHYLAXIS
     Dosage: 1.5 MILLIGRAM

REACTIONS (2)
  - Death [Fatal]
  - Off label use [Recovered/Resolved]
